FAERS Safety Report 7289300-8 (Version None)
Quarter: 2011Q1

REPORT INFORMATION
  Report Type: 
  Country: None (occurrence: None)
  Receive Date: 20110211
  Receipt Date: 20110131
  Transmission Date: 20110831
  Serious: Yes (Other)
  Sender: FDA-Public Use
  Company Number: US-ELI_LILLY_AND_COMPANY-US201102000275

PATIENT
  Sex: Female

DRUGS (6)
  1. ZYPREXA [Suspect]
     Dosage: 1 D/F, UNK
  2. PRENATAL VITAMINS                  /01549301/ [Concomitant]
  3. LITHIUM CARBONATE [Concomitant]
  4. TUMS [Concomitant]
     Indication: DYSPEPSIA
  5. ZYPREXA [Suspect]
     Indication: BIPOLAR DISORDER
     Dosage: 7.5 MG, UNK
     Dates: start: 20010101, end: 20020101
  6. TRAZODONE HCL [Concomitant]
     Indication: SLEEP DISORDER
     Dosage: UNK, AS NEEDED

REACTIONS (2)
  - DRUG EXPOSURE DURING PREGNANCY [None]
  - PRE-ECLAMPSIA [None]
